FAERS Safety Report 8831111 (Version 3)
Quarter: 2013Q1

REPORT INFORMATION
  Report Type: Spontaneous
  Country: JP (occurrence: JP)
  Receive Date: 20121009
  Receipt Date: 20130102
  Transmission Date: 20140127
  Serious: Yes (Other)
  Sender: FDA-Public Use
  Company Number: JP-PFIZER INC-2012227427

PATIENT
  Age: 54 Year
  Sex: Female

DRUGS (4)
  1. AZULFIDINE EN [Suspect]
     Indication: RHEUMATOID ARTHRITIS
     Dosage: 500 MG, 1X/DAY
     Route: 048
     Dates: start: 20120704, end: 20120807
  2. AZULFIDINE EN [Suspect]
     Dosage: 500 MG, 2X/DAY
     Route: 048
     Dates: start: 20120808, end: 20120912
  3. PARIET [Concomitant]
     Indication: GASTROOESOPHAGEAL REFLUX DISEASE
     Dosage: 10 MG, 1X/DAY
     Route: 048
  4. PREDONINE [Concomitant]
     Indication: RHEUMATOID ARTHRITIS
     Dosage: 5 MG OR 10 MG
     Route: 048

REACTIONS (2)
  - Agranulocytosis [Recovered/Resolved]
  - Tooth abscess [Recovering/Resolving]
